FAERS Safety Report 8766136 (Version 1)
Quarter: 2012Q4

REPORT INFORMATION
  Report Type: 
  Country: US (occurrence: US)
  Receive Date: 20120904
  Receipt Date: 20120904
  Transmission Date: 20130627
  Serious: Yes (Other)
  Sender: FDA-Public Use
  Company Number: US-009507513-1208USA011725

PATIENT

DRUGS (6)
  1. VICTRELIS [Suspect]
     Dosage: 800 mg, tid
     Route: 048
  2. REBETOL [Suspect]
     Route: 048
  3. PEGASYS [Suspect]
  4. BUPROPION HYDROCHLORIDE [Concomitant]
     Route: 048
  5. VITAMIN C TOWA [Concomitant]
  6. LUNESTA [Concomitant]

REACTIONS (6)
  - Blindness [Unknown]
  - Dizziness [Unknown]
  - Nausea [Unknown]
  - Vomiting [Unknown]
  - Dysgeusia [Unknown]
  - Rash [Unknown]
